FAERS Safety Report 6784940-4 (Version None)
Quarter: 2010Q2

REPORT INFORMATION
  Report Type: 
  Country: None (occurrence: None)
  Receive Date: 20100622
  Receipt Date: 20100614
  Transmission Date: 20101027
  Serious: Yes (Other)
  Sender: FDA-Public Use
  Company Number: CA-AMGEN-KDL328360

PATIENT
  Sex: Female
  Weight: 85 kg

DRUGS (10)
  1. ENBREL [Suspect]
     Indication: RHEUMATOID ARTHRITIS
     Route: 030
     Dates: start: 20081103
  2. LITHIUM CARBONATE [Concomitant]
  3. CIPRALEX [Concomitant]
  4. LIPITOR [Concomitant]
  5. METHOTREXATE [Concomitant]
  6. SYNTHROID [Concomitant]
  7. MONOPRIL [Concomitant]
  8. METFORMIN [Concomitant]
     Dates: start: 20100501
  9. MIRAPEX [Concomitant]
     Dates: start: 20100326
  10. CLONAZEPAM [Concomitant]
     Dates: start: 20100326

REACTIONS (13)
  - BALANCE DISORDER [None]
  - BLEPHAROSPASM [None]
  - CHEILITIS [None]
  - DIABETES MELLITUS [None]
  - FEELING ABNORMAL [None]
  - HYPERHIDROSIS [None]
  - HYPOAESTHESIA [None]
  - LIP SWELLING [None]
  - MOUTH INJURY [None]
  - NASOPHARYNGITIS [None]
  - PARAESTHESIA [None]
  - RESTLESS LEGS SYNDROME [None]
  - TREMOR [None]
